FAERS Safety Report 11976498 (Version 2)
Quarter: 2016Q1

REPORT INFORMATION
  Report Type: Spontaneous
  Country: SK (occurrence: SK)
  Receive Date: 20160129
  Receipt Date: 20160208
  Transmission Date: 20160526
  Serious: Yes (Other)
  Sender: FDA-Public Use
  Company Number: SK-FERRINGPH-2016FE00259

PATIENT

DRUGS (7)
  1. CLONAZEPAN [Concomitant]
     Active Substance: CLONAZEPAM
     Indication: BIPOLAR DISORDER
     Dosage: 1 DF, 1 TIME DAILY
     Dates: start: 2010
  2. FIRMAGON [Suspect]
     Active Substance: DEGARELIX ACETATE
     Dosage: 80 MG, MONTHLY
     Route: 058
     Dates: end: 20160111
  3. BICALUTAMIDE. [Concomitant]
     Active Substance: BICALUTAMIDE
     Indication: PROSTATE CANCER
     Dosage: 1 DF, 1 TIME DAILY
     Dates: start: 20150511
  4. FIRMAGON [Suspect]
     Active Substance: DEGARELIX ACETATE
     Indication: PROSTATE CANCER
     Dosage: 240 MG, ONCE/SINGLE
     Dates: start: 20150511, end: 20150511
  5. TAMSULOZIN [Concomitant]
     Indication: NOCTURIA
     Dosage: 1 DF, 1 TIME DAILY
     Dates: start: 20150420
  6. LEVOMEPROMAZINE [Concomitant]
     Active Substance: LEVOMEPROMAZINE
     Indication: BIPOLAR DISORDER
     Dosage: 1 DF, 1 TIME DAILY
     Dates: start: 2014
  7. GLIMEPIRID TEVA [Concomitant]
     Indication: DIABETES MELLITUS
     Dosage: 1 DF, 1 TIME DAILY
     Dates: start: 20150518

REACTIONS (1)
  - Rash generalised [Not Recovered/Not Resolved]

NARRATIVE: CASE EVENT DATE: 20160112
